FAERS Safety Report 6380163-1 (Version None)
Quarter: 2009Q3

REPORT INFORMATION
  Report Type: 
  Country: None (occurrence: None)
  Receive Date: 20090929
  Receipt Date: 20090921
  Transmission Date: 20100115
  Serious: Yes (Other)
  Sender: FDA-Public Use
  Company Number: IT-JNJFOC-20090906941

PATIENT
  Age: 46 Year
  Sex: Male

DRUGS (5)
  1. RISPERDAL [Suspect]
     Indication: SELF INJURIOUS BEHAVIOUR
     Route: 065
  2. DIAZEPAM [Suspect]
     Indication: SELF INJURIOUS BEHAVIOUR
  3. GABAPENTIN [Suspect]
     Indication: SELF INJURIOUS BEHAVIOUR
  4. BROMAZEPAM [Suspect]
     Indication: SELF INJURIOUS BEHAVIOUR
     Dosage: 2.5 MG/ML
  5. NOZINAN [Suspect]
     Indication: SELF INJURIOUS BEHAVIOUR

REACTIONS (2)
  - MULTIPLE DRUG OVERDOSE INTENTIONAL [None]
  - SELF INJURIOUS BEHAVIOUR [None]
